FAERS Safety Report 23462386 (Version 2)
Quarter: 2024Q1

REPORT INFORMATION
  Report Type: Spontaneous
  Country: CN (occurrence: None)
  Receive Date: 20240131
  Receipt Date: 20240209
  Transmission Date: 20240409
  Serious: Yes (Life-Threatening, Hospitalization, Other)
  Sender: FDA-Public Use
  Company Number: 2024A021730

PATIENT
  Age: 75 Year
  Sex: Female
  Weight: 60 kg

DRUGS (1)
  1. IMFINZI [Suspect]
     Active Substance: DURVALUMAB
     Route: 042
     Dates: start: 202302

REACTIONS (7)
  - Organ failure [Recovered/Resolved]
  - Coma [Recovered/Resolved]
  - Pancreatic failure [Recovered/Resolved]
  - Blood glucose increased [Recovered/Resolved]
  - Acidosis [Recovered/Resolved]
  - Lactic acidosis [Unknown]
  - Product use issue [Unknown]

NARRATIVE: CASE EVENT DATE: 20230901
